FAERS Safety Report 12982560 (Version 1)
Quarter: 2016Q4

REPORT INFORMATION
  Report Type: Spontaneous
  Country: US (occurrence: US)
  Receive Date: 20161129
  Receipt Date: 20161129
  Transmission Date: 20170207
  Serious: Yes (Other)
  Sender: FDA-Public Use
  Company Number: US-SAGENTPRD-2016-US-000067

PATIENT
  Age: 60 Year
  Sex: Male

DRUGS (3)
  1. IFOSFAMIDE. [Concomitant]
     Active Substance: IFOSFAMIDE
  2. CISPLATIN. [Concomitant]
     Active Substance: CISPLATIN
  3. DOXORUBICIN HYDROCHLORIDE INJECTION, USP [Suspect]
     Active Substance: DOXORUBICIN HYDROCHLORIDE
     Dosage: UNKNOWN

REACTIONS (1)
  - Acute myeloid leukaemia [Unknown]
